FAERS Safety Report 8362898-4 (Version None)
Quarter: 2012Q1

REPORT INFORMATION
  Report Type: 
  Country: None (occurrence: None)
  Receive Date: 20120323
  Receipt Date: 20110822
  Transmission Date: 20120608
  Serious: Yes (Other)
  Sender: FDA-Public Use
  Company Number: 163-21880-11042774

PATIENT
  Age: 84 Year
  Sex: Male
  Weight: 74.8435 kg

DRUGS (15)
  1. TRAVATAN Z [Concomitant]
  2. REVLIMID [Suspect]
     Indication: MULTIPLE MYELOMA
     Dosage: 25 MG, DAILY FOR 21 DAYS, PO
     Route: 048
     Dates: start: 20110407, end: 20110701
  3. ACETAMINOPHEN [Concomitant]
  4. VITAMIN D [Concomitant]
  5. OMEPRAZOLE [Concomitant]
  6. NEURONTIN [Concomitant]
  7. DECADRON [Concomitant]
  8. SYMBICORT (SYMBICORT TURBUHALER ^DRACO^) [Concomitant]
  9. CITALOPRAM HYDROBROMIDE [Concomitant]
  10. PERCOCET [Concomitant]
  11. LASIX [Concomitant]
  12. AMLOIDPINE (AMLODIPINE) [Concomitant]
  13. CALCIUM CARBONATE [Concomitant]
  14. ASPIRIN [Concomitant]
  15. ZOMETA [Concomitant]

REACTIONS (2)
  - DYSPNOEA [None]
  - BONE MARROW FAILURE [None]
